FAERS Safety Report 23095196 (Version 1)
Quarter: 2023Q4

REPORT INFORMATION
  Report Type: Spontaneous
  Country: US (occurrence: None)
  Receive Date: 20231019
  Receipt Date: 20231019
  Transmission Date: 20240110
  Serious: Yes (Hospitalization)
  Sender: FDA-Public Use
  Company Number: None

PATIENT
  Age: 41 Year
  Sex: Male
  Weight: 233 kg

DRUGS (1)
  1. EMPAGLIFLOZIN [Suspect]
     Active Substance: EMPAGLIFLOZIN
     Dosage: FREQUENCY : DAILY;?
     Route: 048
     Dates: start: 20210120, end: 20220912

REACTIONS (7)
  - Diabetic ketoacidosis [None]
  - Diarrhoea [None]
  - Vomiting [None]
  - Fatigue [None]
  - Gastroenteritis viral [None]
  - Blood potassium decreased [None]
  - Therapy cessation [None]

NARRATIVE: CASE EVENT DATE: 20220912
